FAERS Safety Report 5630202-8 (Version None)
Quarter: 2008Q1

REPORT INFORMATION
  Report Type: 
  Country: None (occurrence: None)
  Receive Date: 20080219
  Receipt Date: 20080205
  Transmission Date: 20080703
  Serious: Yes (Other)
  Sender: FDA-Public Use
  Company Number: FR-JNJFOC-20070803489

PATIENT
  Age: 31 Year
  Sex: Male

DRUGS (2)
  1. TRAMADOL HCL [Suspect]
     Indication: PAIN
     Route: 048
  2. ULTRACET [Suspect]
     Indication: PAIN
     Dosage: 650MG, 75MG
     Route: 048

REACTIONS (7)
  - DISTURBANCE IN ATTENTION [None]
  - DIZZINESS [None]
  - FALL [None]
  - HYPERHIDROSIS [None]
  - NAUSEA [None]
  - VISUAL DISTURBANCE [None]
  - WITHDRAWAL SYNDROME [None]
